FAERS Safety Report 18780029 (Version 11)
Quarter: 2021Q3

REPORT INFORMATION
  Report Type: Other
  Country: CA (occurrence: CA)
  Receive Date: 20210125
  Receipt Date: 20210913
  Transmission Date: 20211014
  Serious: Yes (Hospitalization)
  Sender: FDA-Public Use
  Company Number: CA-ROCHE-2752091

PATIENT
  Age: 45 Year
  Sex: Male

DRUGS (3)
  1. BENADRYL [Suspect]
     Active Substance: DIPHENHYDRAMINE HYDROCHLORIDE
     Indication: PRODUCT USED FOR UNKNOWN INDICATION
     Route: 065
  2. OCREVUS [Suspect]
     Active Substance: OCRELIZUMAB
     Indication: RELAPSING-REMITTING MULTIPLE SCLEROSIS
     Dosage: 300 MG AT DAY 0 AND 14, THEN 600 MG EVERY 6 MONTH.
     Route: 042
     Dates: start: 20200708
  3. OCREVUS [Suspect]
     Active Substance: OCRELIZUMAB
     Dosage: DAY 0, 14 THEN 600 MG Q6M
     Route: 042

REACTIONS (7)
  - Tooth infection [Recovered/Resolved]
  - Enuresis [Recovered/Resolved]
  - Temperature regulation disorder [Not Recovered/Not Resolved]
  - Anger [Not Recovered/Not Resolved]
  - Pneumonia [Recovered/Resolved]
  - Infusion related reaction [Recovered/Resolved]
  - Fatigue [Unknown]

NARRATIVE: CASE EVENT DATE: 20200708
